FAERS Safety Report 9762396 (Version 1)
Quarter: 2013Q4

REPORT INFORMATION
  Report Type: Spontaneous
  Country: FR (occurrence: None)
  Receive Date: 20131213
  Receipt Date: 20131213
  Transmission Date: 20140711
  Serious: Yes (Hospitalization)
  Sender: FDA-Public Use
  Company Number: FK201305241

PATIENT
  Age: 76 Year
  Sex: Female

DRUGS (2)
  1. PIPERACILLIN / TAZOBACTAM [Suspect]
     Indication: LUNG DISORDER
     Route: 048
     Dates: start: 20131012, end: 20131016
  2. AMIKACINE [Suspect]
     Indication: LUNG DISORDER
     Route: 048
     Dates: start: 20131012, end: 20131016

REACTIONS (2)
  - Cholestasis [None]
  - Hepatocellular injury [None]
